FAERS Safety Report 9428749 (Version 1)
Quarter: 2013Q3

REPORT INFORMATION
  Report Type: Spontaneous
  Country: US (occurrence: US)
  Receive Date: 20130730
  Receipt Date: 20130730
  Transmission Date: 20140515
  Serious: No
  Sender: FDA-Public Use
  Company Number: US-ABBOTT-12P-163-1025615-00

PATIENT
  Sex: Female

DRUGS (1)
  1. NIASPAN [Suspect]
     Indication: PRODUCT USED FOR UNKNOWN INDICATION
     Dates: end: 20121219

REACTIONS (5)
  - Flushing [Unknown]
  - Feeling hot [Unknown]
  - Headache [Unknown]
  - Paraesthesia [Unknown]
  - Unevaluable event [Unknown]
